FAERS Safety Report 15734497 (Version 1)
Quarter: 2018Q4

REPORT INFORMATION
  Report Type: Spontaneous
  Country: CR (occurrence: CR)
  Receive Date: 20181218
  Receipt Date: 20181218
  Transmission Date: 20190205
  Serious: Yes (Other)
  Sender: FDA-Public Use
  Company Number: PHHY2018CR184549

PATIENT
  Age: 26 Year
  Sex: Male

DRUGS (1)
  1. TEGRETOL [Suspect]
     Active Substance: CARBAMAZEPINE
     Indication: PRODUCT USED FOR UNKNOWN INDICATION
     Dosage: 400 MG, BID (IN THE MORNING AND AT NIGHT)
     Route: 065

REACTIONS (4)
  - Seizure [Unknown]
  - Cough [Unknown]
  - Respiratory tract infection bacterial [Unknown]
  - Headache [Unknown]

NARRATIVE: CASE EVENT DATE: 20181208
